FAERS Safety Report 18023039 (Version 1)
Quarter: 2020Q3

REPORT INFORMATION
  Report Type: Other
  Country: ES (occurrence: ES)
  Receive Date: 20200715
  Receipt Date: 20200715
  Transmission Date: 20201103
  Serious: Yes (Hospitalization)
  Sender: FDA-Public Use
  Company Number: ES-ROCHE-2150457

PATIENT
  Age: 95 Year
  Sex: Female

DRUGS (4)
  1. DIAZEPAM. [Suspect]
     Active Substance: DIAZEPAM
     Indication: BEHAVIOUR DISORDER
     Dosage: MOST RECENT DOSE ON 14/JUN/2017
     Route: 048
     Dates: start: 20170609
  2. DISTRANEURINE [Suspect]
     Active Substance: CLOMETHIAZOLE
     Indication: BEHAVIOUR DISORDER
     Route: 048
     Dates: start: 2017
  3. ORFIDAL [Suspect]
     Active Substance: LORAZEPAM
     Indication: DEPRESSION
     Route: 048
     Dates: start: 2017
  4. HALOPERIDOL. [Suspect]
     Active Substance: HALOPERIDOL
     Indication: BEHAVIOUR DISORDER
     Dosage: MOST RECENT DOSE ON 14/JUN/2017
     Route: 048
     Dates: start: 2017

REACTIONS (1)
  - Depressed level of consciousness [Recovering/Resolving]

NARRATIVE: CASE EVENT DATE: 20170614
